FAERS Safety Report 24643075 (Version 1)
Quarter: 2024Q4

REPORT INFORMATION
  Report Type: Spontaneous
  Country: IN (occurrence: IN)
  Receive Date: 20241120
  Receipt Date: 20241120
  Transmission Date: 20250115
  Serious: Yes (Other)
  Sender: PFIZER
  Company Number: IN-PFIZER INC-2021084755

PATIENT
  Age: 56 Year
  Sex: Female

DRUGS (8)
  1. PALBOCICLIB [Suspect]
     Active Substance: PALBOCICLIB
     Indication: Breast cancer metastatic
     Dosage: 125 MG, CYCLIC (ONCE A DAY, 21 DAYS - 7 DAYS OFF)
     Route: 048
     Dates: start: 20200511
  2. LETROZOLE [Concomitant]
     Active Substance: LETROZOLE
     Dosage: UNK, CYCLIC
     Dates: start: 20200704
  3. LETROZOLE [Concomitant]
     Active Substance: LETROZOLE
     Dosage: 2.5 MG, 1X/DAY
  4. CALCIUM\CHOLECALCIFEROL [Concomitant]
     Active Substance: CALCIUM\CHOLECALCIFEROL
     Dosage: 500 MG, 1X/DAY
  5. OSTEOFOS [Concomitant]
     Dosage: 70 MG, WEEKLY (ONCE A WEEK ON EMPTY STOMACH)
  6. CHOLECALCIFEROL [Concomitant]
     Active Substance: CHOLECALCIFEROL
     Dosage: ONCE A WEEK FOR 6 WEEKS AND THEN ONCE A MONTH FOR 6 MONTHS (60 K)
  7. CHOLECALCIFEROL [Concomitant]
     Active Substance: CHOLECALCIFEROL
     Dosage: ONCE MONTH FOR 6 MONTHS (60 K)
  8. NEUROBION FORTE [CALCIUM PANTOTHENATE;CYANOCOBALAMIN;NICOTINAMIDE;PYRI [Concomitant]
     Dosage: 1 DF, 1X/DAY

REACTIONS (9)
  - Acquired diaphragmatic eventration [Unknown]
  - Carbohydrate antigen 15-3 increased [Recovered/Resolved]
  - Vitamin D abnormal [Unknown]
  - Vitamin B12 abnormal [Unknown]
  - Osteopenia [Unknown]
  - Blood creatinine decreased [Unknown]
  - Haemoglobin decreased [Unknown]
  - White blood cell count decreased [Unknown]
  - Neoplasm progression [Recovering/Resolving]

NARRATIVE: CASE EVENT DATE: 20220110
